FAERS Safety Report 24796233 (Version 2)
Quarter: 2025Q1

REPORT INFORMATION
  Report Type: Spontaneous
  Country: US (occurrence: US)
  Receive Date: 20250101
  Receipt Date: 20250110
  Transmission Date: 20250409
  Serious: Yes (Life-Threatening, Hospitalization, Other)
  Sender: GLENMARK
  Company Number: US-MLMSERVICE-20241213-PI300577-00331-1

PATIENT

DRUGS (3)
  1. VERAPAMIL [Suspect]
     Active Substance: VERAPAMIL HYDROCHLORIDE
     Indication: Hypertrophic cardiomyopathy
     Dosage: 180 MILLIGRAM, BID (INITIATED AND RECENTLY INCREASED DOSE)
     Route: 065
  2. VERAPAMIL [Suspect]
     Active Substance: VERAPAMIL HYDROCHLORIDE
     Dosage: 60 MILLIGRAM, BID
     Route: 065
  3. METOPROLOL SUCCINATE [Concomitant]
     Active Substance: METOPROLOL SUCCINATE
     Indication: Hypertrophic cardiomyopathy
     Dosage: 50 MILLIGRAM, BID
     Route: 065

REACTIONS (9)
  - Cardiogenic shock [Recovering/Resolving]
  - Condition aggravated [Recovering/Resolving]
  - Haemodynamic instability [Recovering/Resolving]
  - Renal impairment [Recovered/Resolved]
  - Respiratory distress [Unknown]
  - Acquired left ventricle outflow tract obstruction [Unknown]
  - Hyperkalaemia [Recovering/Resolving]
  - Toxicity to various agents [Recovering/Resolving]
  - Bradycardia [Recovering/Resolving]
